FAERS Safety Report 17515837 (Version 6)
Quarter: 2020Q2

REPORT INFORMATION
  Report Type: Report from Study
  Country: US (occurrence: US)
  Receive Date: 20200309
  Receipt Date: 20200513
  Transmission Date: 20200713
  Serious: No
  Sender: FDA-Public Use
  Company Number: NVSC2020US066260

PATIENT
  Sex: Male

DRUGS (1)
  1. COSENTYX [Suspect]
     Active Substance: SECUKINUMAB
     Indication: PSORIATIC ARTHROPATHY
     Dosage: 150 MG, QMO
     Route: 058

REACTIONS (8)
  - Neck pain [Unknown]
  - Insomnia [Unknown]
  - Migraine [Unknown]
  - Mobility decreased [Unknown]
  - Musculoskeletal chest pain [Unknown]
  - Inflammation [Unknown]
  - Pain [Unknown]
  - Intervertebral disc degeneration [Unknown]
